FAERS Safety Report 20207976 (Version 3)
Quarter: 2022Q1

REPORT INFORMATION
  Report Type: Report from Study
  Country: BR (occurrence: BR)
  Receive Date: 20211220
  Receipt Date: 20220323
  Transmission Date: 20220423
  Serious: Yes (Hospitalization)
  Sender: FDA-Public Use
  Company Number: BR-NOVARTISPH-NVSC2021BR290809

PATIENT
  Age: 66 Year
  Sex: Male

DRUGS (3)
  1. SECUKINUMAB [Suspect]
     Active Substance: SECUKINUMAB
     Indication: Product used for unknown indication
     Dosage: UNK UNK, QW
     Route: 065
     Dates: start: 20211213, end: 20220117
  2. SECUKINUMAB [Suspect]
     Active Substance: SECUKINUMAB
     Dosage: UNK (INDUCTION DOSES)
     Route: 065
     Dates: start: 202201, end: 202202
  3. SECUKINUMAB [Suspect]
     Active Substance: SECUKINUMAB
     Dosage: UNK
     Route: 065
     Dates: start: 20220214

REACTIONS (2)
  - Condition aggravated [Unknown]
  - Inappropriate schedule of product administration [Recovered/Resolved]

NARRATIVE: CASE EVENT DATE: 20220117
